FAERS Safety Report 7603025-8 (Version None)
Quarter: 2011Q3

REPORT INFORMATION
  Report Type: 
  Country: None (occurrence: None)
  Receive Date: 20110701
  Receipt Date: 20110617
  Transmission Date: 20111222
  Serious: Yes (Other)
  Sender: FDA-Public Use
  Company Number: 2011MA001324

PATIENT
  Age: 66 Year
  Sex: Male

DRUGS (7)
  1. ZOPICLONE [Concomitant]
  2. CITALOPRAM HYDROBROMIDE [Suspect]
     Indication: DEPRESSION
     Dosage: 20 MG;    ; PO
     Dates: start: 20100924, end: 20110117
  3. ZOPICLONE [Concomitant]
  4. LOPERAMIDE [Concomitant]
  5. INSULIN GLARGINE [Concomitant]
  6. NOVORAPID [Concomitant]
  7. METFORMIN HCL [Concomitant]

REACTIONS (2)
  - SOMNAMBULISM [None]
  - SLEEP-RELATED EATING DISORDER [None]
